FAERS Safety Report 9773809 (Version 1)
Quarter: 2013Q4

REPORT INFORMATION
  Report Type: Report from Study
  Country: US (occurrence: US)
  Receive Date: 20131220
  Receipt Date: 20131220
  Transmission Date: 20140711
  Serious: Yes (Hospitalization)
  Sender: FDA-Public Use
  Company Number: US-ROCHE-1319751

PATIENT
  Sex: 0

DRUGS (3)
  1. BEVACIZUMAB [Suspect]
     Indication: OVARIAN EPITHELIAL CANCER
     Route: 065
     Dates: start: 20130923, end: 20131106
  2. CARBOPLATIN [Suspect]
     Indication: OVARIAN EPITHELIAL CANCER
     Dosage: DOSE TEMPORARILY SUSPENDED
     Route: 065
     Dates: start: 20130923, end: 20131106
  3. PACLITAXEL [Suspect]
     Indication: OVARIAN EPITHELIAL CANCER
     Dosage: DOSE TEMPORARILY SUSPENDED
     Route: 065
     Dates: start: 20130923, end: 20131106

REACTIONS (1)
  - Arrhythmia [Recovered/Resolved]
